FAERS Safety Report 11232898 (Version 1)
Quarter: 2015Q3

REPORT INFORMATION
  Report Type: Spontaneous
  Country: DK (occurrence: CA)
  Receive Date: 20150701
  Receipt Date: 20150701
  Transmission Date: 20151125
  Serious: Yes (Hospitalization, Disabling)
  Sender: FDA-Public Use
  Company Number: CA-FRI-1000077770

PATIENT
  Age: 17 Year
  Sex: Female
  Weight: 59 kg

DRUGS (5)
  1. FLUOXETINE [Concomitant]
     Active Substance: FLUOXETINE\FLUOXETINE HYDROCHLORIDE
     Indication: PRODUCT USED FOR UNKNOWN INDICATION
     Dosage: DAILY DOSE NOT REPORTED
     Route: 065
  2. CELEXA [Suspect]
     Active Substance: CITALOPRAM HYDROBROMIDE
     Indication: PRODUCT USED FOR UNKNOWN INDICATION
     Dosage: DAILY DOSE NOT REPORTED
     Route: 065
  3. HUMIRA [Suspect]
     Active Substance: ADALIMUMAB
     Indication: JUVENILE IDIOPATHIC ARTHRITIS
     Dosage: 2.8571 MG
     Route: 058
  4. FOLIC ACID. [Concomitant]
     Active Substance: FOLIC ACID
     Indication: PRODUCT USED FOR UNKNOWN INDICATION
     Dosage: DAILY DOSE NOT REPORTED
     Route: 065
  5. METHOTREXATE [Concomitant]
     Active Substance: METHOTREXATE
     Indication: PRODUCT USED FOR UNKNOWN INDICATION
     Dosage: DAILY DOSE NOT REPORTED
     Route: 065

REACTIONS (13)
  - Affective disorder [Unknown]
  - Analgesic drug level decreased [Unknown]
  - Blood lactate dehydrogenase increased [Unknown]
  - Psychosexual disorder [Unknown]
  - Sleep disorder [Unknown]
  - Stress [Unknown]
  - Product use issue [Unknown]
  - Borderline personality disorder [Unknown]
  - Major depression [Unknown]
  - Anxiety [Unknown]
  - Overdose [Unknown]
  - Device issue [Unknown]
  - Mental disorder [Unknown]
